FAERS Safety Report 18766118 (Version 1)
Quarter: 2021Q1

REPORT INFORMATION
  Report Type: Spontaneous
  Country: CN (occurrence: CN)
  Receive Date: 20210120
  Receipt Date: 20210120
  Transmission Date: 20210419
  Serious: Yes (Hospitalization, Other)
  Sender: FDA-Public Use
  Company Number: CN-SA-2021SA011892

PATIENT
  Age: 69 Year
  Sex: Male
  Weight: 60 kg

DRUGS (4)
  1. ELOXATIN [Suspect]
     Active Substance: OXALIPLATIN
     Indication: CHEMOTHERAPY
     Dosage: 165 MG
     Route: 041
     Dates: start: 20201219, end: 20201219
  2. CEFOXIN [CEFOXITIN] [Suspect]
     Active Substance: CEFOXITIN SODIUM
     Indication: ANTI-INFECTIVE THERAPY
     Dosage: 2 G, BID
     Route: 041
  3. GLUCOSE [GLUCOSE MONOHYDRATE] [Concomitant]
     Active Substance: DEXTROSE MONOHYDRATE
     Dosage: 250 ML
     Route: 041
     Dates: start: 20201219, end: 20201219
  4. FLUOROURACIL. [Suspect]
     Active Substance: FLUOROURACIL
     Indication: CHEMOTHERAPY
     Dosage: UNK

REACTIONS (10)
  - Abscess [Recovering/Resolving]
  - Incision site swelling [Recovering/Resolving]
  - Hiccups [Recovering/Resolving]
  - Abdominal pain [Recovering/Resolving]
  - Abdominal wall oedema [Recovering/Resolving]
  - Abscess rupture [Recovering/Resolving]
  - Postoperative wound infection [Recovering/Resolving]
  - Swelling [Recovering/Resolving]
  - Incision site erythema [Recovering/Resolving]
  - Erythema [Recovering/Resolving]

NARRATIVE: CASE EVENT DATE: 20201224
